FAERS Safety Report 17684664 (Version 4)
Quarter: 2020Q2

REPORT INFORMATION
  Report Type: Report from Study
  Country: AU (occurrence: AU)
  Receive Date: 20200420
  Receipt Date: 20200623
  Transmission Date: 20200714
  Serious: Yes (Hospitalization, Other)
  Sender: FDA-Public Use
  Company Number: AU-SHIRE-AU201936210

PATIENT

DRUGS (6)
  1. TEDUGLUTIDE [Suspect]
     Active Substance: TEDUGLUTIDE
     Indication: SHORT-BOWEL SYNDROME
     Dosage: 3.2 MILLIGRAM, 1X/DAY:QD
     Route: 058
  2. TEDUGLUTIDE [Suspect]
     Active Substance: TEDUGLUTIDE
     Dosage: UNK
     Dates: start: 20200219
  3. TPN [NICOTINAMIDE;PYRIDOXINE HYDROCHLORIDE;TYROSINE] [Concomitant]
     Active Substance: NIACINAMIDE\PYRIDOXINE HYDROCHLORIDE\TYROSINE
     Indication: PRODUCT USED FOR UNKNOWN INDICATION
  4. TEDUGLUTIDE [Suspect]
     Active Substance: TEDUGLUTIDE
     Dosage: 3.2 MILLIGRAM, 1X/DAY:QD
     Route: 058
     Dates: end: 20200612
  5. TEDUGLUTIDE [Suspect]
     Active Substance: TEDUGLUTIDE
     Dosage: 0.32 MILLILITER, UNKNOWN
     Route: 065
     Dates: start: 20181218
  6. IRON [Suspect]
     Active Substance: IRON
     Indication: PRODUCT USED FOR UNKNOWN INDICATION
     Route: 065

REACTIONS (28)
  - Erythema [Unknown]
  - Sepsis [Unknown]
  - Vomiting [Unknown]
  - Abdominal pain [Unknown]
  - Product availability issue [Unknown]
  - Intestinal haemorrhage [Unknown]
  - Lethargy [Recovering/Resolving]
  - Rash papular [Recovered/Resolved]
  - Eating disorder [Unknown]
  - Crying [Unknown]
  - Dyspnoea [Unknown]
  - Social avoidant behaviour [Unknown]
  - Muscle fatigue [Unknown]
  - Treatment noncompliance [Unknown]
  - Malaise [Unknown]
  - Abdominal distension [Unknown]
  - Inappropriate schedule of product administration [Unknown]
  - Vision blurred [Not Recovered/Not Resolved]
  - Musculoskeletal stiffness [Not Recovered/Not Resolved]
  - Muscle tightness [Unknown]
  - Chest pain [Unknown]
  - Peripheral swelling [Unknown]
  - Dizziness [Not Recovered/Not Resolved]
  - Infection [Unknown]
  - Abdominal discomfort [Unknown]
  - Fatigue [Unknown]
  - Myalgia [Not Recovered/Not Resolved]
  - Affective disorder [Unknown]

NARRATIVE: CASE EVENT DATE: 20200219
